FAERS Safety Report 5640833-7 (Version None)
Quarter: 2008Q1

REPORT INFORMATION
  Report Type: 
  Country: None (occurrence: None)
  Receive Date: 20080227
  Receipt Date: 20080219
  Transmission Date: 20080703
  Serious: Yes (Other)
  Sender: FDA-Public Use
  Company Number: CA-ELI_LILLY_AND_COMPANY-CA200711006107

PATIENT
  Sex: Female

DRUGS (9)
  1. FORTEO [Suspect]
     Indication: OSTEOPOROSIS
     Dosage: 20 UG, DAILY (1/D)
     Route: 058
     Dates: start: 20070110
  2. PREMARIN [Concomitant]
     Dosage: 0.625 MG, DAILY (1/D)
  3. ACTONEL [Concomitant]
     Dosage: 35 MG, UNK
  4. TRAVATAN [Concomitant]
     Route: 047
  5. CALCIUM CARBONATE [Concomitant]
     Dosage: 500 MG, 3/D
  6. VITAMIN D [Concomitant]
  7. VITAMIN B-12 [Concomitant]
     Dosage: UNK D/F, MONTHLY (1/M)
  8. GLUCOSAMINE [Concomitant]
     Dosage: UNK, DAILY (1/D)
  9. CALCIMAR [Concomitant]
     Dosage: UNK D/F, DAILY (1/D)
     Route: 045

REACTIONS (3)
  - ATRIAL FIBRILLATION [None]
  - MITRAL VALVE INCOMPETENCE [None]
  - TRICUSPID VALVE INCOMPETENCE [None]
